FAERS Safety Report 15611803 (Version 2)
Quarter: 2018Q4

REPORT INFORMATION
  Report Type: Report from Study
  Country: None (occurrence: ES)
  Receive Date: 20181113
  Receipt Date: 20181122
  Transmission Date: 20190205
  Serious: Yes (Hospitalization, Other)
  Sender: FDA-Public Use
  Company Number: ES-ABBVIE-18S-144-2546401-00

PATIENT
  Age: 77 Year
  Sex: Male
  Weight: 88 kg

DRUGS (1)
  1. DUODOPA [Suspect]
     Active Substance: CARBIDOPA\LEVODOPA
     Indication: PARKINSON^S DISEASE
     Route: 050
     Dates: start: 20180831

REACTIONS (3)
  - Pneumonia aspiration [Recovered/Resolved]
  - Vomiting [Recovered/Resolved]
  - Volvulus [Recovered/Resolved]

NARRATIVE: CASE EVENT DATE: 20181101
